FAERS Safety Report 7980980-8 (Version None)
Quarter: 2011Q4

REPORT INFORMATION
  Report Type: 
  Country: None (occurrence: None)
  Receive Date: 20111215
  Receipt Date: 20111213
  Transmission Date: 20120403
  Serious: No
  Sender: FDA-Public Use
  Company Number: US-BIOGENIDEC-2011BI003421

PATIENT
  Sex: Female

DRUGS (1)
  1. TYSABRI [Suspect]
     Indication: MULTIPLE SCLEROSIS
     Route: 042
     Dates: start: 20100903, end: 20111101

REACTIONS (6)
  - FEELING ABNORMAL [None]
  - MYALGIA [None]
  - ARTHRALGIA [None]
  - BAND SENSATION [None]
  - FATIGUE [None]
  - HEADACHE [None]
